FAERS Safety Report 6370134-3 (Version None)
Quarter: 2009Q3

REPORT INFORMATION
  Report Type: 
  Country: None (occurrence: None)
  Receive Date: 20090923
  Receipt Date: 20070924
  Transmission Date: 20100115
  Serious: Yes (Other)
  Sender: FDA-Public Use
  Company Number: US-ASTRAZENECA-2006UW21774

PATIENT
  Sex: Male
  Weight: 109.1 kg

DRUGS (16)
  1. SEROQUEL [Suspect]
     Indication: SCHIZOPHRENIA
     Dosage: ONE TABLET IN THE MORNING, TWO TABLET AT  NIGHT
     Route: 048
     Dates: start: 20050114
  2. SEROQUEL [Suspect]
     Indication: BIPOLAR DISORDER
     Dosage: ONE TABLET IN THE MORNING, TWO TABLET AT  NIGHT
     Route: 048
     Dates: start: 20050114
  3. SEROQUEL [Suspect]
     Indication: DEPRESSION
     Dosage: ONE TABLET IN THE MORNING, TWO TABLET AT  NIGHT
     Route: 048
     Dates: start: 20050114
  4. SEROQUEL [Suspect]
     Indication: PSYCHOTIC BEHAVIOUR
     Dosage: ONE TABLET IN THE MORNING, TWO TABLET AT  NIGHT
     Route: 048
     Dates: start: 20050114
  5. SEROQUEL [Suspect]
     Indication: AGITATION
     Dosage: ONE TABLET IN THE MORNING, TWO TABLET AT  NIGHT
     Route: 048
     Dates: start: 20050114
  6. SEROQUEL [Suspect]
     Indication: SLEEP DISORDER
     Dosage: ONE TABLET IN THE MORNING, TWO TABLET AT  NIGHT
     Route: 048
     Dates: start: 20050114
  7. NAVANE [Concomitant]
  8. RISPERDAL [Concomitant]
  9. STELAZINE [Concomitant]
  10. THORAZINE [Concomitant]
  11. MELLARIL [Concomitant]
  12. LEXAPRO [Concomitant]
     Indication: DEPRESSION
     Dosage: 10 MG ONE TABLET QAM
     Route: 048
     Dates: start: 20050114
  13. TOPAMAX [Concomitant]
     Indication: MOOD ALTERED
     Dosage: 25 MG ONE TABLET QAM, ONE TABLET QHS
     Dates: start: 20050114
  14. ATIVAN [Concomitant]
     Indication: SLEEP DISORDER
     Dosage: 0.5 MG AT ONE HS
     Dates: start: 20020109
  15. ATENOLOL [Concomitant]
     Dates: start: 20020109
  16. ENALAPRIL MALEATE [Concomitant]
     Dates: start: 20020109

REACTIONS (4)
  - ACTIVITIES OF DAILY LIVING IMPAIRED [None]
  - HYPERGLYCAEMIA [None]
  - PANCREATITIS [None]
  - TARDIVE DYSKINESIA [None]
